FAERS Safety Report 10439667 (Version 1)
Quarter: 2014Q3

REPORT INFORMATION
  Report Type: Spontaneous
  Country: BR (occurrence: BR)
  Receive Date: 20140908
  Receipt Date: 20140908
  Transmission Date: 20150326
  Serious: Yes (Hospitalization)
  Sender: FDA-Public Use
  Company Number: BR-PFIZER INC-2014243440

PATIENT
  Age: 50 Year
  Sex: Male
  Weight: 115 kg

DRUGS (1)
  1. LYRICA [Suspect]
     Active Substance: PREGABALIN
     Indication: INTERVERTEBRAL DISC PROTRUSION
     Dosage: 1 CAPSULE OF 75 MG, DAILY
     Route: 048
     Dates: start: 2013

REACTIONS (2)
  - Rib fracture [Unknown]
  - Accident [Unknown]

NARRATIVE: CASE EVENT DATE: 20140817
